FAERS Safety Report 11245450 (Version 1)
Quarter: 2015Q3

REPORT INFORMATION
  Report Type: Spontaneous
  Country: US (occurrence: US)
  Receive Date: 20150707
  Receipt Date: 20150707
  Transmission Date: 20151125
  Serious: No
  Sender: FDA-Public Use
  Company Number: US-ELI_LILLY_AND_COMPANY-US201506004796

PATIENT
  Sex: Male

DRUGS (2)
  1. CIALIS [Suspect]
     Active Substance: TADALAFIL
     Indication: SEXUAL DYSFUNCTION
     Dosage: 5 MG, PRN
     Route: 065
     Dates: start: 201501
  2. CIALIS [Suspect]
     Active Substance: TADALAFIL
     Dosage: UNK HALF TABLET, PRN
     Route: 065

REACTIONS (3)
  - Wrong technique in product usage process [Unknown]
  - Drug dependence [Unknown]
  - Off label use [Unknown]
